FAERS Safety Report 10366918 (Version 1)
Quarter: 2014Q3

REPORT INFORMATION
  Report Type: Spontaneous
  Country: US (occurrence: US)
  Receive Date: 20140807
  Receipt Date: 20140807
  Transmission Date: 20150326
  Serious: Yes (Hospitalization)
  Sender: FDA-Public Use
  Company Number: US-BEH-2014044287

PATIENT
  Age: 55 Year
  Sex: Female
  Weight: 63 kg

DRUGS (26)
  1. TYLOX [Concomitant]
     Active Substance: ACETAMINOPHEN\OXYCODONE HYDROCHLORIDE
  2. VISTARIL [Concomitant]
     Active Substance: HYDROXYZINE PAMOATE
  3. LYRICA [Concomitant]
     Active Substance: PREGABALIN
  4. ADVAIR HFA [Concomitant]
     Active Substance: FLUTICASONE PROPIONATE\SALMETEROL XINAFOATE
  5. DIPHENHYDRAMINE [Concomitant]
     Active Substance: DIPHENHYDRAMINE
  6. BUSPIRONE [Concomitant]
     Active Substance: BUSPIRONE HYDROCHLORIDE
  7. FLEXERIL [Concomitant]
     Active Substance: CYCLOBENZAPRINE HYDROCHLORIDE
  8. HIZENTRA [Suspect]
     Active Substance: HUMAN IMMUNOGLOBULIN G
  9. ZITHROMAX [Concomitant]
     Active Substance: AZITHROMYCIN DIHYDRATE
  10. PROTONIX [Concomitant]
     Active Substance: PANTOPRAZOLE SODIUM
  11. MAG OXIDE [Concomitant]
  12. HIZENTRA [Suspect]
     Active Substance: HUMAN IMMUNOGLOBULIN G
     Indication: IMMUNODEFICIENCY COMMON VARIABLE
  13. METOPROLOL [Concomitant]
     Active Substance: METOPROLOL
  14. POTASSIUM CL [Concomitant]
     Active Substance: POTASSIUM CHLORIDE
  15. LIDOCAINE/PRILOCAINE [Concomitant]
  16. GABAPENTIN. [Concomitant]
     Active Substance: GABAPENTIN
  17. SIMVASTATIN. [Concomitant]
     Active Substance: SIMVASTATIN
  18. PAROXETINE [Concomitant]
     Active Substance: PAROXETINE\PAROXETINE HYDROCHLORIDE
  19. COLACE [Concomitant]
     Active Substance: DOCUSATE SODIUM
  20. ZYPREXA [Concomitant]
     Active Substance: OLANZAPINE
  21. CLONAZEPAM. [Concomitant]
     Active Substance: CLONAZEPAM
  22. EPIPEN [Concomitant]
     Active Substance: EPINEPHRINE
  23. PLAVIX [Concomitant]
     Active Substance: CLOPIDOGREL BISULFATE
  24. FUROSEMIDE. [Concomitant]
     Active Substance: FUROSEMIDE
  25. LIDODERM [Concomitant]
     Active Substance: LIDOCAINE
  26. OXYGEN. [Concomitant]
     Active Substance: OXYGEN

REACTIONS (1)
  - Transient ischaemic attack [Unknown]

NARRATIVE: CASE EVENT DATE: 201407
